FAERS Safety Report 4848450-3 (Version None)
Quarter: 2005Q4

REPORT INFORMATION
  Report Type: 
  Country: None (occurrence: None)
  Receive Date: 20051208
  Receipt Date: 20051130
  Transmission Date: 20060501
  Serious: Yes (Other)
  Sender: FDA-Public Use
  Company Number: AU-ROCHE-426674

PATIENT
  Age: 77 Year
  Sex: Male

DRUGS (7)
  1. CEFTRIAXONE [Suspect]
     Indication: DRUG USE FOR UNKNOWN INDICATION
     Route: 042
     Dates: end: 20031012
  2. AUGMENTIN FORTE DUO [Suspect]
     Route: 048
     Dates: start: 20031013
  3. LASIX [Concomitant]
  4. LERCANIDIPINE [Concomitant]
  5. OMEPRAZOLE [Concomitant]
  6. METRONIDAZOLE [Concomitant]
  7. PARACETAMOL [Concomitant]

REACTIONS (7)
  - DYSPNOEA [None]
  - HYPERHIDROSIS [None]
  - HYPOTENSION [None]
  - OXYGEN SATURATION DECREASED [None]
  - PALLOR [None]
  - PRURITUS [None]
  - TACHYCARDIA [None]
